FAERS Safety Report 21006430 (Version 1)
Quarter: 2022Q2

REPORT INFORMATION
  Report Type: Spontaneous
  Country: US (occurrence: US)
  Receive Date: 20220624
  Receipt Date: 20220624
  Transmission Date: 20220720
  Serious: No
  Sender: FDA-Public Use
  Company Number: US-Amarin Pharma, Inc.-2022AMR001003

PATIENT
  Age: 52 Year
  Sex: Female
  Weight: 165.56 kg

DRUGS (13)
  1. VASCEPA [Suspect]
     Active Substance: ICOSAPENT ETHYL
     Indication: C-reactive protein increased
     Route: 048
  2. TRULICITY [Concomitant]
     Active Substance: DULAGLUTIDE
     Indication: Glucose tolerance impaired
  3. ATORVASTATIN [Concomitant]
     Active Substance: ATORVASTATIN
     Indication: Blood cholesterol
  4. TYROSINE [Concomitant]
     Active Substance: TYROSINE
     Indication: Thyroid disorder
  5. BETAINE\FOLIC ACID\METHYLCOBALAMIN\PYRIDOXINE\RIBOFLAVIN [Concomitant]
     Active Substance: BETAINE\FOLIC ACID\METHYLCOBALAMIN\PYRIDOXINE\RIBOFLAVIN
     Indication: Product used for unknown indication
  6. ASPIRIN [Concomitant]
     Active Substance: ASPIRIN
     Indication: Product used for unknown indication
  7. UBIQUINOL [Concomitant]
     Active Substance: UBIQUINOL
     Indication: Product used for unknown indication
  8. VITAMIN D3 [Concomitant]
     Active Substance: CHOLECALCIFEROL
     Indication: Product used for unknown indication
  9. ACETYLCYSTEINE [Concomitant]
     Active Substance: ACETYLCYSTEINE
     Indication: Product used for unknown indication
  10. VITAMIN C [Concomitant]
     Active Substance: ASCORBIC ACID
     Indication: Product used for unknown indication
  11. MAGNESIUM [Concomitant]
     Active Substance: MAGNESIUM
     Indication: Product used for unknown indication
  12. FOLIC ACID [Concomitant]
     Active Substance: FOLIC ACID
     Indication: Product used for unknown indication
  13. HERBALS\TURMERIC [Concomitant]
     Active Substance: HERBALS\TURMERIC
     Indication: Product used for unknown indication

REACTIONS (4)
  - Thyroid disorder [Not Recovered/Not Resolved]
  - Product physical issue [Not Recovered/Not Resolved]
  - Product physical issue [Not Recovered/Not Resolved]
  - Off label use [Unknown]

NARRATIVE: CASE EVENT DATE: 20210101
